FAERS Safety Report 11250527 (Version 1)
Quarter: 2015Q3

REPORT INFORMATION
  Report Type: Spontaneous
  Country: US (occurrence: US)
  Receive Date: 20150708
  Receipt Date: 20150708
  Transmission Date: 20151125
  Serious: Yes (Death)
  Sender: FDA-Public Use
  Company Number: US-ELI_LILLY_AND_COMPANY-US201101001677

PATIENT
  Sex: Female
  Weight: 56.69 kg

DRUGS (16)
  1. PROCRIT [Concomitant]
     Active Substance: ERYTHROPOIETIN
  2. CELEXA [Concomitant]
     Active Substance: CITALOPRAM HYDROBROMIDE
  3. ZOFRAN [Concomitant]
     Active Substance: ONDANSETRON HYDROCHLORIDE
  4. FOLIC ACID. [Concomitant]
     Active Substance: FOLIC ACID
     Dosage: 1 MG, UNK
     Route: 048
     Dates: start: 20091106
  5. KCL [Concomitant]
     Active Substance: POTASSIUM CHLORIDE
  6. AVASTIN [Concomitant]
     Active Substance: BEVACIZUMAB
  7. PLAVIX [Concomitant]
     Active Substance: CLOPIDOGREL BISULFATE
  8. CORTICOSTEROIDS [Concomitant]
     Active Substance: CORTICOSTEROID NOS
     Dosage: 10 MG, UNK
     Route: 042
     Dates: start: 20091109
  9. NEXIUM [Concomitant]
     Active Substance: ESOMEPRAZOLE MAGNESIUM
  10. OXY.IR [Concomitant]
  11. CRESTOR [Concomitant]
     Active Substance: ROSUVASTATIN CALCIUM
  12. ALIMTA [Suspect]
     Active Substance: PEMETREXED DISODIUM
     Dates: end: 20100706
  13. DURAGESIC [Concomitant]
     Active Substance: FENTANYL
  14. XANAX [Concomitant]
     Active Substance: ALPRAZOLAM
  15. LORTAB [Concomitant]
     Active Substance: ACETAMINOPHEN\HYDROCODONE BITARTRATE
  16. VITAMIN B12 [Concomitant]
     Active Substance: CYANOCOBALAMIN
     Dosage: 1000 UG, UNK
     Route: 058
     Dates: start: 20091106

REACTIONS (1)
  - Malignant neoplasm progression [Fatal]
